FAERS Safety Report 4675479-0 (Version None)
Quarter: 2005Q2

REPORT INFORMATION
  Report Type: 
  Country: None (occurrence: None)
  Receive Date: 20050527
  Receipt Date: 20050317
  Transmission Date: 20051028
  Serious: Yes (Hospitalization)
  Sender: FDA-Public Use
  Company Number: US-BRISTOL-MYERS SQUIBB COMPANY-12902102

PATIENT
  Age: 56 Year
  Sex: Male
  Weight: 82 kg

DRUGS (5)
  1. ABILIFY [Suspect]
     Indication: BIPOLAR I DISORDER
     Dosage: 15 MG ABOUT 6 MONTHS AGO; THEN 10 MG DAILY
  2. ABILIFY [Suspect]
     Indication: BIPOLAR DISORDER
     Dosage: 15 MG ABOUT 6 MONTHS AGO; THEN 10 MG DAILY
  3. ABILIFY [Suspect]
     Indication: SCHIZOAFFECTIVE DISORDER
     Dosage: 15 MG ABOUT 6 MONTHS AGO; THEN 10 MG DAILY
  4. LITHIUM [Concomitant]
  5. DEPAKOTE [Concomitant]

REACTIONS (8)
  - BLOOD GLUCOSE INCREASED [None]
  - CONFUSIONAL STATE [None]
  - FALL [None]
  - HALLUCINATION [None]
  - POLLAKIURIA [None]
  - PYREXIA [None]
  - THIRST [None]
  - VOMITING [None]
